FAERS Safety Report 5465551-X (Version None)
Quarter: 2007Q3

REPORT INFORMATION
  Report Type: 
  Country: None (occurrence: None)
  Receive Date: 20070924
  Receipt Date: 19930903
  Transmission Date: 20080115
  Serious: Yes (Other)
  Sender: FDA-Public Use
  Company Number: FR-PFIZER INC-2006122642

PATIENT
  Sex: Male

DRUGS (1)
  1. IRINOTECAN HCL [Suspect]
     Indication: RECTAL CANCER
     Dosage: DAILY DOSE:665MG-FREQ:EVERY 3 WEEKS
     Route: 042
     Dates: start: 19930809, end: 19930809

REACTIONS (1)
  - VENTRICULAR EXTRASYSTOLES [None]
